FAERS Safety Report 14909521 (Version 2)
Quarter: 2018Q2

REPORT INFORMATION
  Report Type: Spontaneous
  Country: US (occurrence: US)
  Receive Date: 20180517
  Receipt Date: 20180626
  Transmission Date: 20180711
  Serious: No
  Sender: FDA-Public Use
  Company Number: US-GLAXOSMITHKLINE-US2018082392

PATIENT
  Age: 23 Year
  Sex: Male
  Weight: 87 kg

DRUGS (1)
  1. EQUATE NICOTINE [Suspect]
     Active Substance: NICOTINE
     Indication: SMOKING CESSATION THERAPY
     Dosage: 14 MG, UNK
     Dates: start: 20180508, end: 20180508

REACTIONS (2)
  - Application site erythema [Unknown]
  - Application site warmth [Unknown]

NARRATIVE: CASE EVENT DATE: 20180508
